FAERS Safety Report 10009810 (Version 2)
Quarter: 2014Q1

REPORT INFORMATION
  Report Type: Spontaneous
  Country: US (occurrence: US)
  Receive Date: 20140312
  Receipt Date: 20140312
  Transmission Date: 20141002
  Serious: No
  Sender: FDA-Public Use
  Company Number: US-INCYTE CORPORATION-2013IN000063

PATIENT
  Age: 81 Year
  Sex: Male

DRUGS (6)
  1. JAKAFI [Suspect]
     Indication: MYELOFIBROSIS
     Dosage: 15 MG, BID
     Route: 048
     Dates: start: 20121001, end: 20130115
  2. JAKAFI [Suspect]
     Dosage: 5 MG, BID
     Route: 048
     Dates: start: 201301
  3. LISINOPRIL [Concomitant]
     Dosage: 10 MG, UNK
  4. GLIMEPIRIDE [Concomitant]
     Dosage: 4 MG, UNK
  5. ASPIRIN [Concomitant]
     Dosage: 81 MG, UNK
     Route: 048
  6. FENOFIBRATE [Concomitant]
     Dosage: 145 MG, UNK

REACTIONS (5)
  - Blood potassium increased [Recovered/Resolved]
  - Cough [Unknown]
  - Feeling abnormal [Unknown]
  - Anaemia [Recovered/Resolved]
  - White blood cell count decreased [Recovered/Resolved]
